FAERS Safety Report 5291142-X (Version None)
Quarter: 2007Q2

REPORT INFORMATION
  Report Type: 
  Country: None (occurrence: None)
  Receive Date: 20070409
  Receipt Date: 20070328
  Transmission Date: 20071010
  Serious: Yes (Hospitalization)
  Sender: FDA-Public Use
  Company Number: US-AVENTIS-200712274US

PATIENT
  Age: 59 Year
  Sex: Female

DRUGS (10)
  1. LANTUS [Suspect]
     Dosage: DOSE: SLIDING SCALE, 20 UNITS/DAY
     Dates: start: 20060101
  2. OPTICLIK (INSULIN INJECTION PEN) [Suspect]
     Dates: start: 20060101
  3. NOVOLOG [Concomitant]
     Dosage: DOSE: UNK
  4. NORVASC [Concomitant]
     Dosage: DOSE: UNK
  5. ASPIRIN [Concomitant]
     Dosage: DOSE: UNK
  6. BYETTA [Concomitant]
     Dosage: DOSE: UNK
  7. ANTIGLAUCOMA PREPARATIONS AND MIOTICS [Concomitant]
     Dosage: DOSE: UNK
     Route: 047
  8. COSOPT                             /01419801/ [Concomitant]
     Dosage: DOSE: UNK
     Route: 047
  9. MONOPRIL [Concomitant]
     Dosage: DOSE: UNK
  10. ZOCOR [Concomitant]
     Dosage: DOSE: UNK

REACTIONS (1)
  - CARDIAC FAILURE CONGESTIVE [None]
